FAERS Safety Report 13794081 (Version 1)
Quarter: 2017Q3

REPORT INFORMATION
  Report Type: Spontaneous
  Country: JP (occurrence: JP)
  Receive Date: 20170726
  Receipt Date: 20170726
  Transmission Date: 20171127
  Serious: Yes (Hospitalization, Other)
  Sender: FDA-Public Use
  Company Number: JP-GLAXOSMITHKLINE-JP2017JPN090036

PATIENT
  Age: 69 Year
  Sex: Male
  Weight: 61 kg

DRUGS (20)
  1. DEXTRAN [Concomitant]
     Active Substance: DEXTRAN
     Indication: THROMBOSIS PROPHYLAXIS
     Dosage: 500 ML, QD
     Dates: start: 20160312, end: 20160313
  2. LAMICTAL [Suspect]
     Active Substance: LAMOTRIGINE
     Dosage: 50 MG, QD
     Route: 048
     Dates: start: 20160329, end: 20160418
  3. NOVASTAN [Concomitant]
     Active Substance: ARGATROBAN
     Indication: CEREBRAL THROMBOSIS
     Dosage: 60 MG, QD
     Dates: start: 20160312, end: 20160313
  4. LAMICTAL [Suspect]
     Active Substance: LAMOTRIGINE
     Dosage: 100 MG, QD
     Route: 048
     Dates: start: 20160419, end: 20160422
  5. MOSAPRIDE CITRATE HYDRATE [Concomitant]
     Active Substance: MOSAPRIDE CITRATE DIHYDRATE
     Indication: ABDOMINAL DISCOMFORT
     Dosage: 5 MG, BID
     Dates: end: 20160312
  6. OZAGREL SODIUM [Concomitant]
     Active Substance: OZAGREL SODIUM
     Indication: MOVEMENT DISORDER
     Dosage: 80 MG, BID
     Dates: start: 20160312, end: 20160314
  7. SOLACET F [Concomitant]
     Dosage: 500 ML, QD
     Dates: start: 20160312, end: 20160313
  8. CLOPIDOGREL SULFATE [Concomitant]
     Active Substance: CLOPIDOGREL BISULFATE
     Indication: PROPHYLAXIS
     Dosage: 75 MG, QD
     Dates: start: 20160312, end: 20160318
  9. NEXIUM [Concomitant]
     Active Substance: ESOMEPRAZOLE MAGNESIUM
     Indication: GASTRIC ULCER
     Dosage: 10 MG, QD
     Dates: start: 20160312, end: 20160328
  10. SEISHOKU [Concomitant]
     Active Substance: SODIUM CHLORIDE
     Dosage: 100 ML, BID
     Dates: start: 20160314, end: 20160314
  11. LAMICTAL [Suspect]
     Active Substance: LAMOTRIGINE
     Indication: PARTIAL SEIZURES
     Dosage: 25 MG, QD
     Route: 048
     Dates: start: 20160315, end: 20160328
  12. EDARAVONE [Concomitant]
     Active Substance: EDARAVONE
     Indication: CEREBRAL INFARCTION
     Dosage: 30 MG, BID
     Dates: start: 20160312, end: 20160318
  13. NOVASTAN [Concomitant]
     Active Substance: ARGATROBAN
     Dosage: 5 MG, BID
     Dates: start: 20160314, end: 20160314
  14. MOSAPRIDE CITRATE HYDRATE [Concomitant]
     Active Substance: MOSAPRIDE CITRATE DIHYDRATE
     Indication: CHRONIC GASTRITIS
  15. OZAGREL SODIUM [Concomitant]
     Active Substance: OZAGREL SODIUM
     Indication: CEREBRAL THROMBOSIS
  16. SEISHOKU [Concomitant]
     Active Substance: SODIUM CHLORIDE
     Dosage: 100 ML, BID
     Dates: start: 20160312, end: 20160314
  17. SOLACET F [Concomitant]
     Dosage: 500 ML, QD
     Dates: start: 20160312, end: 20160316
  18. LIXIANA [Concomitant]
     Active Substance: EDOXABAN TOSYLATE
     Indication: PROPHYLAXIS
     Dosage: 60 MG, QD
     Dates: start: 20160315
  19. PARIET [Concomitant]
     Active Substance: RABEPRAZOLE SODIUM
     Indication: GASTRIC ULCER
     Dosage: 10 MG, QD
     Dates: end: 20160312
  20. HEPARIN NA LOCK [Concomitant]
     Active Substance: HEPARIN SODIUM
     Indication: PROPHYLAXIS
     Dosage: UNK, QD
     Dates: start: 20160316, end: 20160316

REACTIONS (23)
  - Pyrexia [Recovering/Resolving]
  - Cheilitis [Recovering/Resolving]
  - Drug eruption [Recovering/Resolving]
  - Lacrimation decreased [Recovering/Resolving]
  - Tongue exfoliation [Recovering/Resolving]
  - Oropharyngeal pain [Recovering/Resolving]
  - Renal cyst [Unknown]
  - Conjunctival hyperaemia [Recovering/Resolving]
  - Vasodilatation [Recovering/Resolving]
  - Lip erosion [Recovering/Resolving]
  - Scab [Recovering/Resolving]
  - Stevens-Johnson syndrome [Recovered/Resolved]
  - Skin exfoliation [Recovering/Resolving]
  - Oral mucosa erosion [Recovering/Resolving]
  - Lymphadenopathy [Recovering/Resolving]
  - Corneal disorder [Unknown]
  - Rash generalised [Recovering/Resolving]
  - Hypophagia [Recovering/Resolving]
  - Rash papular [Recovering/Resolving]
  - Conjunctivitis bacterial [Recovering/Resolving]
  - Pigmentation disorder [Unknown]
  - Malaise [Recovering/Resolving]
  - Goitre [Unknown]

NARRATIVE: CASE EVENT DATE: 20160331
